FAERS Safety Report 18392428 (Version 1)
Quarter: 2020Q4

REPORT INFORMATION
  Report Type: Spontaneous
  Country: US (occurrence: US)
  Receive Date: 20201016
  Receipt Date: 20201016
  Transmission Date: 20210114
  Serious: Yes (Hospitalization)
  Sender: FDA-Public Use
  Company Number: None

PATIENT
  Sex: Female

DRUGS (15)
  1. CEFADROXIL. [Concomitant]
     Active Substance: CEFADROXIL
  2. LEFLUNOMIDE. [Concomitant]
     Active Substance: LEFLUNOMIDE
  3. TRAMADOL HCL [Concomitant]
     Active Substance: TRAMADOL HYDROCHLORIDE
  4. HUMIRA [Suspect]
     Active Substance: ADALIMUMAB
     Indication: RHEUMATOID ARTHRITIS
     Route: 058
     Dates: start: 20160409
  5. ANORO ELLIPT [Concomitant]
  6. CEPHALEXIN. [Concomitant]
     Active Substance: CEPHALEXIN
  7. TORSEMIDE. [Concomitant]
     Active Substance: TORSEMIDE
  8. HYDROXYCHLOR [Concomitant]
     Active Substance: HYDROXYCHLOROQUINE
  9. METFORMIN [Concomitant]
     Active Substance: METFORMIN HYDROCHLORIDE
  10. POT CHLORIDE ER [Concomitant]
  11. FOLIC ACID. [Concomitant]
     Active Substance: FOLIC ACID
  12. ALBUTEROL AER [Concomitant]
     Active Substance: ALBUTEROL
  13. CYCLOBENZAPR [Concomitant]
     Active Substance: CYCLOBENZAPRINE
  14. FUROSEMIDE. [Concomitant]
     Active Substance: FUROSEMIDE
  15. PRAVASTATIN. [Concomitant]
     Active Substance: PRAVASTATIN

REACTIONS (1)
  - Sepsis [None]
